FAERS Safety Report 5279915-0 (Version None)
Quarter: 2007Q1

REPORT INFORMATION
  Report Type: 
  Country: None (occurrence: None)
  Receive Date: 20070329
  Receipt Date: 20070316
  Transmission Date: 20070707
  Serious: Yes (Other)
  Sender: FDA-Public Use
  Company Number: PHEH2006US09073

PATIENT
  Age: 31 Year
  Sex: Female
  Weight: 55.328 kg

DRUGS (3)
  1. TRILEPTAL [Suspect]
     Indication: BIPOLAR DISORDER
     Dosage: UNK, UNK
     Route: 048
     Dates: end: 20060625
  2. GEODON [Concomitant]
     Indication: POST-TRAUMATIC STRESS DISORDER
     Dosage: 80-120 MG, QD
     Route: 048
  3. LEXAPRO [Concomitant]
     Indication: BIPOLAR DISORDER
     Dosage: 10 MG, UNK
     Route: 048

REACTIONS (4)
  - DRUG EXPOSURE DURING PREGNANCY [None]
  - PYELONEPHRITIS [None]
  - URINARY TRACT INFECTION [None]
  - VAGINITIS BACTERIAL [None]
